FAERS Safety Report 6707008-1 (Version None)
Quarter: 2010Q2

REPORT INFORMATION
  Report Type: 
  Country: None (occurrence: None)
  Receive Date: 20100430
  Receipt Date: 20100430
  Transmission Date: 20101027
  Serious: Yes (Hospitalization)
  Sender: FDA-Public Use
  Company Number: None

PATIENT
  Age: 52 Year
  Sex: Female
  Weight: 64.8644 kg

DRUGS (6)
  1. RECLAST [Suspect]
     Indication: OSTEOPOROSIS
     Dosage: 5 MG IV DRIP
     Route: 041
     Dates: start: 20100304, end: 20100304
  2. LAMICTAL [Concomitant]
  3. OXYCONTIN [Concomitant]
  4. CELEXA [Concomitant]
  5. VITAMIN D [Concomitant]
  6. VITAMIN B-12 [Concomitant]

REACTIONS (5)
  - DYSPHAGIA [None]
  - INFLUENZA [None]
  - MUSCLE RIGIDITY [None]
  - MUSCULOSKELETAL STIFFNESS [None]
  - PAIN [None]
